FAERS Safety Report 4508207-X (Version None)
Quarter: 2004Q4

REPORT INFORMATION
  Report Type: 
  Country: None (occurrence: None)
  Receive Date: 20041123
  Receipt Date: 20031113
  Transmission Date: 20050328
  Serious: No
  Sender: FDA-Public Use
  Company Number: US-GLAXOSMITHKLINE-A0439638A

PATIENT
  Age: 52 Year
  Sex: Female

DRUGS (10)
  1. WELLBUTRIN [Suspect]
     Indication: DEPRESSION
     Route: 048
     Dates: start: 20000501
  2. EFFEXOR XR [Concomitant]
  3. MULTI-VITAMIN [Concomitant]
  4. VITAMIN B COMPLEX CAP [Concomitant]
  5. VITAMIN C [Concomitant]
  6. VITAMIN E [Concomitant]
  7. IRON SUPPLEMENT [Concomitant]
  8. CALCIUM [Concomitant]
  9. LEVOXYL [Concomitant]
  10. FOSAMAX [Concomitant]

REACTIONS (1)
  - GASTROINTESTINAL MOTILITY DISORDER [None]
